FAERS Safety Report 9261302 (Version 3)
Quarter: 2013Q3

REPORT INFORMATION
  Report Type: Spontaneous
  Country: US (occurrence: US)
  Receive Date: 20130429
  Receipt Date: 20130703
  Transmission Date: 20140515
  Serious: Yes (Other)
  Sender: FDA-Public Use
  Company Number: US-PFIZER INC-2013130388

PATIENT
  Age: 72 Year
  Sex: Female
  Weight: 51 kg

DRUGS (3)
  1. CELEBREX [Suspect]
     Indication: ARTHRITIS
     Dosage: 200 MG, 1X/DAY
     Route: 048
     Dates: start: 20130108, end: 20130116
  2. LIPITOR [Concomitant]
     Dosage: 10 MG, UNK
  3. LEVOXYL [Concomitant]
     Dosage: UNK

REACTIONS (3)
  - Arthropathy [Unknown]
  - Diarrhoea [Recovered/Resolved]
  - Blood sodium decreased [Unknown]
